FAERS Safety Report 14782757 (Version 1)
Quarter: 2018Q2

REPORT INFORMATION
  Report Type: Spontaneous
  Country: US (occurrence: US)
  Receive Date: 20180420
  Receipt Date: 20180420
  Transmission Date: 20180711
  Serious: No
  Sender: FDA-Public Use
  Company Number: US-BAYER-2018-075416

PATIENT
  Age: 60 Year
  Sex: Female
  Weight: 95.24 kg

DRUGS (7)
  1. MELOXICAM. [Concomitant]
     Active Substance: MELOXICAM
     Dosage: UNK
  2. ATORVASTATIN [Concomitant]
     Active Substance: ATORVASTATIN
     Indication: BLOOD CHOLESTEROL ABNORMAL
     Dosage: UNK
  3. LISINOPRIL. [Concomitant]
     Active Substance: LISINOPRIL
     Indication: HYPOTENSION
     Dosage: UNK
  4. ALEVE [Suspect]
     Active Substance: NAPROXEN SODIUM
     Indication: SLEEP DISORDER THERAPY
     Dosage: UNK
  5. PANTOPRAZOLE [Concomitant]
     Active Substance: PANTOPRAZOLE
     Indication: GASTROOESOPHAGEAL REFLUX DISEASE
     Dosage: UNK UNK, QD
     Dates: start: 201606
  6. LYRICA [Concomitant]
     Active Substance: PREGABALIN
     Indication: DIABETIC NEUROPATHY
     Dosage: 50 MG, TID
     Route: 048
  7. SUCRALFATE. [Concomitant]
     Active Substance: SUCRALFATE
     Indication: IMPAIRED GASTRIC EMPTYING
     Dosage: UNK
     Dates: start: 201606

REACTIONS (6)
  - Product use in unapproved indication [None]
  - Weight increased [Not Recovered/Not Resolved]
  - Insomnia [Not Recovered/Not Resolved]
  - Blood viscosity decreased [Unknown]
  - Paraesthesia [Not Recovered/Not Resolved]
  - Incorrect dose administered [Unknown]

NARRATIVE: CASE EVENT DATE: 201608
